FAERS Safety Report 14692000 (Version 1)
Quarter: 2018Q1

REPORT INFORMATION
  Report Type: Spontaneous
  Country: DE (occurrence: DE)
  Receive Date: 20180329
  Receipt Date: 20180329
  Transmission Date: 20180509
  Serious: Yes (Other)
  Sender: FDA-Public Use
  Company Number: DE-TEVA-2018-DE-876677

PATIENT
  Age: 89 Year
  Sex: Female
  Weight: 49 kg

DRUGS (5)
  1. RAMIPRIL. [Suspect]
     Active Substance: RAMIPRIL
     Route: 048
  2. XARELTO [Concomitant]
     Active Substance: RIVAROXABAN
  3. RAMIPRIL. [Suspect]
     Active Substance: RAMIPRIL
     Route: 048
  4. BISOPROLOL [Concomitant]
     Active Substance: BISOPROLOL
  5. DEMADEX [Concomitant]
     Active Substance: TORSEMIDE
     Dosage: IF NEEDED, MAYBE IN EVEN IN THE EVENING
     Route: 065

REACTIONS (5)
  - Cardiac failure [Unknown]
  - Bronchiectasis [Unknown]
  - Chronic obstructive pulmonary disease [Unknown]
  - Pulmonary embolism [Unknown]
  - Pneumonia [Unknown]
